FAERS Safety Report 26054131 (Version 3)
Quarter: 2025Q4

REPORT INFORMATION
  Report Type: Report from Study
  Country: US (occurrence: US)
  Receive Date: 20251117
  Receipt Date: 20251222
  Transmission Date: 20260118
  Serious: No
  Sender: PFIZER
  Company Number: US-PFIZER INC-202500222463

PATIENT
  Age: 14 Year
  Sex: Male

DRUGS (2)
  1. GENOTROPIN [Suspect]
     Active Substance: SOMATROPIN
     Indication: Growth disorder
     Dosage: UNK
  2. VITAMINS NOS [Concomitant]
     Active Substance: VITAMINS
     Dosage: UNK

REACTIONS (3)
  - Drug dose omission by device [Unknown]
  - Device information output issue [Unknown]
  - Device power source issue [Unknown]

NARRATIVE: CASE EVENT DATE: 20251109
